FAERS Safety Report 13879046 (Version 1)
Quarter: 2017Q3

REPORT INFORMATION
  Report Type: Spontaneous
  Country: US (occurrence: US)
  Receive Date: 20170817
  Receipt Date: 20170817
  Transmission Date: 20171127
  Serious: No
  Sender: FDA-Public Use
  Company Number: US-PFIZER INC-2017352923

PATIENT
  Age: 12 Year
  Sex: Male

DRUGS (1)
  1. GENOTROPIN [Suspect]
     Active Substance: SOMATROPIN
     Indication: GROWTH HORMONE DEFICIENCY
     Dosage: 2.8 MG, DAILY
     Route: 058
     Dates: start: 2004

REACTIONS (5)
  - Oropharyngeal pain [Unknown]
  - Ear pain [Unknown]
  - Hypokinesia [Unknown]
  - Ear infection [Unknown]
  - Malaise [Unknown]

NARRATIVE: CASE EVENT DATE: 20160412
